FAERS Safety Report 5319182-2 (Version None)
Quarter: 2007Q1

REPORT INFORMATION
  Report Type: 
  Country: None (occurrence: None)
  Receive Date: 20070205
  Receipt Date: 20061020
  Transmission Date: 20070707
  Serious: Yes (Other)
  Sender: FDA-Public Use
  Company Number: PAR_0887_2006

PATIENT

DRUGS (1)
  1. MEGACE ES [Suspect]
     Dosage: DF

REACTIONS (1)
  - OEDEMA PERIPHERAL [None]
